FAERS Safety Report 23767538 (Version 2)
Quarter: 2024Q2

REPORT INFORMATION
  Report Type: Report from Study
  Country: US (occurrence: US)
  Receive Date: 20240422
  Receipt Date: 20240620
  Transmission Date: 20240715
  Serious: Yes (Other)
  Sender: FDA-Public Use
  Company Number: US-ABBVIE-5729058

PATIENT
  Age: 60 Year
  Sex: Female

DRUGS (4)
  1. SKYRIZI [Suspect]
     Active Substance: RISANKIZUMAB-RZAA
     Indication: Psoriatic arthropathy
     Dosage: EVERY 12 WEEKS THEREAFTER?FORM STRENGTH: 150 MG
     Route: 058
  2. SKYRIZI [Suspect]
     Active Substance: RISANKIZUMAB-RZAA
     Indication: Psoriasis
     Dosage: FORM STRENGTH: 150 MILLIGRAM?FREQUENCY TEXT: WEEK 4
     Route: 058
     Dates: start: 202308, end: 202308
  3. SKYRIZI [Suspect]
     Active Substance: RISANKIZUMAB-RZAA
     Indication: Crohn^s disease
     Dosage: WEEK 0?FORM STRENGTH:150 MG
     Route: 058
     Dates: start: 20230720, end: 20230720
  4. NUCALA [Concomitant]
     Active Substance: MEPOLIZUMAB
     Indication: Product used for unknown indication
     Dosage: AUTOINJECTOR PF

REACTIONS (16)
  - Spinal osteoarthritis [Unknown]
  - Nodule [Unknown]
  - Spinal cord compression [Unknown]
  - Gastrointestinal disorder [Unknown]
  - Psoriasis [Unknown]
  - Gait disturbance [Unknown]
  - Surgical failure [Unknown]
  - Pain [Unknown]
  - Crohn^s disease [Unknown]
  - Burning sensation [Unknown]
  - Bone swelling [Unknown]
  - Grip strength decreased [Unknown]
  - Drug ineffective [Unknown]
  - Joint swelling [Unknown]
  - Loss of personal independence in daily activities [Unknown]
  - Joint range of motion decreased [Unknown]

NARRATIVE: CASE EVENT DATE: 20240411
